FAERS Safety Report 8428104-7 (Version None)
Quarter: 2012Q2

REPORT INFORMATION
  Report Type: 
  Country: None (occurrence: None)
  Receive Date: 20120611
  Receipt Date: 20120606
  Transmission Date: 20120825
  Serious: Yes (Death)
  Sender: FDA-Public Use
  Company Number: US-ASTRAZENECA-2012SE33444

PATIENT
  Age: 85 Year
  Sex: Male

DRUGS (2)
  1. BRILINTA [Suspect]
     Route: 048
  2. EFFIENT [Suspect]
     Route: 065

REACTIONS (3)
  - NAUSEA [None]
  - ADVERSE EVENT [None]
  - DEATH [None]
